FAERS Safety Report 8045929-0 (Version None)
Quarter: 2012Q1

REPORT INFORMATION
  Report Type: 
  Country: None (occurrence: None)
  Receive Date: 20120113
  Receipt Date: 20120102
  Transmission Date: 20120608
  Serious: Yes (Hospitalization)
  Sender: FDA-Public Use
  Company Number: FR-GLAXOSMITHKLINE-B0772495A

PATIENT
  Sex: Female

DRUGS (8)
  1. EZETIMIBE [Concomitant]
  2. VIDAZA [Suspect]
     Indication: MYELODYSPLASTIC SYNDROME
     Route: 058
     Dates: start: 20111010
  3. METFORMIN HCL [Concomitant]
  4. BISOPROLOL FUMARATE [Concomitant]
  5. ZOFRAN [Suspect]
     Indication: PROPHYLAXIS OF NAUSEA AND VOMITING
     Route: 048
     Dates: start: 20111010
  6. DICLOFENAC [Concomitant]
     Indication: INJECTION SITE PAIN
     Route: 061
  7. VALSARTAN [Concomitant]
  8. ESIDRIX [Concomitant]

REACTIONS (2)
  - RASH ERYTHEMATOUS [None]
  - PRURITUS [None]
